FAERS Safety Report 17272017 (Version 1)
Quarter: 2020Q1

REPORT INFORMATION
  Report Type: Spontaneous
  Country: US (occurrence: US)
  Receive Date: 20191223
  Receipt Date: 20191223
  Transmission Date: 20200409
  Serious: No
  Sender: FDA-Public Use
  Company Number: None

PATIENT
  Age: 51 Year
  Sex: Female

DRUGS (1)
  1. BUPROPION (BUPROPION HCL 100MG 12HR TAB,SA) [Suspect]
     Active Substance: BUPROPION HYDROCHLORIDE
     Indication: DEPRESSION
     Route: 048
     Dates: start: 20191105, end: 20191202

REACTIONS (4)
  - Rash [None]
  - Skin exfoliation [None]
  - Erythema multiforme [None]
  - Urticaria [None]

NARRATIVE: CASE EVENT DATE: 20191122
